FAERS Safety Report 14604401 (Version 3)
Quarter: 2018Q2

REPORT INFORMATION
  Report Type: Report from Study
  Country: JP (occurrence: JP)
  Receive Date: 20180306
  Receipt Date: 20180411
  Transmission Date: 20180711
  Serious: Yes (Other)
  Sender: FDA-Public Use
  Company Number: JP-ELI_LILLY_AND_COMPANY-JP201803000135

PATIENT
  Age: 68 Year
  Sex: Male
  Weight: 71 kg

DRUGS (9)
  1. RAMUCIRUMAB [Suspect]
     Active Substance: RAMUCIRUMAB
     Indication: GASTRIC CANCER STAGE IV
     Dosage: 550 MG, CYCLICAL
     Route: 042
     Dates: start: 20161006, end: 20161110
  2. PACLITAXEL. [Suspect]
     Active Substance: PACLITAXEL
     Dosage: 60 MG, CYCLICAL
     Route: 042
     Dates: start: 20170302, end: 20170302
  3. PACLITAXEL. [Suspect]
     Active Substance: PACLITAXEL
     Dosage: 100 MG, CYCLICAL
     Route: 042
     Dates: start: 20161208, end: 20170202
  4. RAMUCIRUMAB [Suspect]
     Active Substance: RAMUCIRUMAB
     Dosage: 600 MG, CYCLICAL
     Route: 042
     Dates: start: 20170105, end: 20170216
  5. PACLITAXEL. [Suspect]
     Active Substance: PACLITAXEL
     Indication: GASTRIC CANCER STAGE IV
     Dosage: 130 MG, CYCLICAL
     Route: 042
     Dates: start: 20161013, end: 20161110
  6. RAMUCIRUMAB [Suspect]
     Active Substance: RAMUCIRUMAB
     Dosage: 580 MG, CYCLICAL
     Route: 042
     Dates: start: 20161208, end: 20161208
  7. RAMUCIRUMAB [Suspect]
     Active Substance: RAMUCIRUMAB
     Dosage: 570 MG, CYCLICAL
     Route: 042
     Dates: start: 20170302, end: 20170331
  8. RAMUCIRUMAB [Suspect]
     Active Substance: RAMUCIRUMAB
     Dosage: 600 MG, CYCLICAL
     Route: 042
     Dates: start: 20170623, end: 20170915
  9. RAMUCIRUMAB [Suspect]
     Active Substance: RAMUCIRUMAB
     Dosage: 600 MG, CYCLICAL
     Route: 042
     Dates: start: 20170428, end: 20170526

REACTIONS (2)
  - Neutropenia [Recovering/Resolving]
  - Hyponatraemia [Recovered/Resolved]

NARRATIVE: CASE EVENT DATE: 20161124
